FAERS Safety Report 18726407 (Version 2)
Quarter: 2021Q1

REPORT INFORMATION
  Report Type: Spontaneous
  Country: DE (occurrence: DE)
  Receive Date: 20210112
  Receipt Date: 20210113
  Transmission Date: 20210419
  Serious: Yes (Other)
  Sender: FDA-Public Use
  Company Number: DE-ROCHE-2744057

PATIENT
  Age: 62 Year
  Sex: Female

DRUGS (4)
  1. TEMOZOLAMIDA [Concomitant]
     Active Substance: TEMOZOLOMIDE
     Indication: NEUROENDOCRINE CARCINOMA
     Dates: start: 201912
  2. TEMOZOLAMIDA [Concomitant]
     Active Substance: TEMOZOLOMIDE
     Indication: METASTASES TO LIVER
  3. XELODA [Suspect]
     Active Substance: CAPECITABINE
     Indication: NEUROENDOCRINE CARCINOMA
     Route: 065
     Dates: start: 201912
  4. XELODA [Suspect]
     Active Substance: CAPECITABINE
     Indication: METASTASES TO LIVER

REACTIONS (5)
  - Intentional product use issue [Unknown]
  - Platelet count decreased [Not Recovered/Not Resolved]
  - Intestinal ulcer [Unknown]
  - Intestinal perforation [Unknown]
  - Off label use [Unknown]

NARRATIVE: CASE EVENT DATE: 202006
